FAERS Safety Report 7109905-4 (Version None)
Quarter: 2010Q4

REPORT INFORMATION
  Report Type: 
  Country: None (occurrence: None)
  Receive Date: 20101118
  Receipt Date: 20101116
  Transmission Date: 20110411
  Serious: Yes (Other)
  Sender: FDA-Public Use
  Company Number: CH-BRISTOL-MYERS SQUIBB COMPANY-15367055

PATIENT
  Age: 32 Year
  Sex: Female

DRUGS (1)
  1. ORENCIA [Suspect]
     Indication: POLYARTHRITIS
     Dosage: EVENT AFTER 3RD INF
     Route: 042
     Dates: start: 20101012

REACTIONS (2)
  - BRONCHOSPASM [None]
  - CHOKING [None]
